FAERS Safety Report 6793485-7 (Version None)
Quarter: 2010Q2

REPORT INFORMATION
  Report Type: 
  Country: None (occurrence: None)
  Receive Date: 20100624
  Receipt Date: 20100614
  Transmission Date: 20101027
  Serious: Yes (Other)
  Sender: FDA-Public Use
  Company Number: US-MYLANLABS-2010S1006203

PATIENT
  Age: 66 Year
  Sex: Male

DRUGS (2)
  1. CLOZAPINE [Suspect]
     Indication: SCHIZOPHRENIA
     Route: 048
     Dates: start: 20060706, end: 20100415
  2. CLOZAPINE [Suspect]
     Route: 048
     Dates: start: 20060706, end: 20100415

REACTIONS (1)
  - GRANULOCYTOPENIA [None]
